FAERS Safety Report 4321844-0 (Version None)
Quarter: 2004Q1

REPORT INFORMATION
  Report Type: 
  Country: None (occurrence: None)
  Receive Date: 20040318
  Receipt Date: 20031028
  Transmission Date: 20041129
  Serious: Yes (Hospitalization)
  Sender: FDA-Public Use
  Company Number: FLUV00304000669

PATIENT
  Age: 36 Year
  Sex: Female

DRUGS (3)
  1. FLUVOXAMINE MALEATE [Suspect]
     Indication: OBSESSIVE-COMPULSIVE DISORDER
     Dosage: 50 MG DAILY, 75 MG TID, 150 MG DAILY, 75 MG DAILY, DAILY
  2. CHLORDIAZEPOXIDE [Concomitant]
  3. QUETIAPINE (QUETIAPINE) [Concomitant]

REACTIONS (11)
  - AGITATION [None]
  - ANXIETY [None]
  - ASTHENIA [None]
  - COMPLICATIONS OF MATERNAL EXPOSURE TO THERAPEUTIC DRUGS [None]
  - CONDITION AGGRAVATED [None]
  - CONVULSION [None]
  - ELECTROCONVULSIVE THERAPY [None]
  - FOETAL HEART RATE DECREASED [None]
  - INSOMNIA [None]
  - IRRITABILITY [None]
  - OBSESSIVE-COMPULSIVE DISORDER [None]
